FAERS Safety Report 15375211 (Version 7)
Quarter: 2019Q1

REPORT INFORMATION
  Report Type: Spontaneous
  Country: BR (occurrence: BR)
  Receive Date: 20180912
  Receipt Date: 20190218
  Transmission Date: 20190417
  Serious: Yes (Hospitalization, Other)
  Sender: FDA-Public Use
  Company Number: BR-GLAXOSMITHKLINE-BR2018GSK164161

PATIENT
  Age: 50 Year
  Sex: Female
  Weight: 87 kg

DRUGS (1)
  1. BENLYSTA [Suspect]
     Active Substance: BELIMUMAB
     Indication: SYSTEMIC LUPUS ERYTHEMATOSUS
     Dosage: 1000 MG, UNK

REACTIONS (11)
  - Circumstance or information capable of leading to medication error [Recovered/Resolved]
  - Nephrolithiasis [Recovered/Resolved]
  - Headache [Unknown]
  - Inappropriate schedule of product administration [Recovered/Resolved]
  - Pyelonephritis [Unknown]
  - Product dose omission [Unknown]
  - Overdose [Unknown]
  - Pain [Unknown]
  - Urinary tract infection [Recovered/Resolved]
  - Fatigue [Unknown]
  - Renal pain [Not Recovered/Not Resolved]

NARRATIVE: CASE EVENT DATE: 201810
